FAERS Safety Report 8351023-1 (Version None)
Quarter: 2012Q2

REPORT INFORMATION
  Report Type: 
  Country: None (occurrence: None)
  Receive Date: 20120510
  Receipt Date: 20120504
  Transmission Date: 20120825
  Serious: Yes (Hospitalization)
  Sender: FDA-Public Use
  Company Number: US-BRISTOL-MYERS SQUIBB COMPANY-16562308

PATIENT
  Age: 55 Year
  Sex: Male
  Weight: 111 kg

DRUGS (1)
  1. IPILIMUMAB [Suspect]
     Indication: MALIGNANT MELANOMA
     Dosage: LAST DOSE:21DEC11, REMOVED FROM PROTOCOL ON 15FEB12
     Route: 042
     Dates: start: 20111130, end: 20111221

REACTIONS (1)
  - HEADACHE [None]
